FAERS Safety Report 9600479 (Version 1)
Quarter: 2013Q4

REPORT INFORMATION
  Report Type: Spontaneous
  Country: US (occurrence: US)
  Receive Date: 20131004
  Receipt Date: 20131004
  Transmission Date: 20140711
  Serious: No
  Sender: FDA-Public Use
  Company Number: US-AMGEN-USASP2013035978

PATIENT
  Age: 64 Year
  Sex: Male
  Weight: 79.37 kg

DRUGS (8)
  1. ENBREL [Suspect]
     Indication: PRODUCT USED FOR UNKNOWN INDICATION
     Dosage: 50 MG, 2 TIMES/WK
     Route: 058
  2. PANTOPRAZOLE [Concomitant]
     Dosage: 20 MG, UNK
  3. CARVEDILOL [Concomitant]
     Dosage: 3.125 MG, UNK
  4. METFORMIN [Concomitant]
     Dosage: 500 MG, UNK
  5. LISINOPRIL [Concomitant]
     Dosage: 5 MG, UNK
  6. GLIPIZID [Concomitant]
     Dosage: 5 MG, UNK
  7. ATORVASTATIN [Concomitant]
     Dosage: 10 MG, UNK
  8. ASA [Concomitant]
     Dosage: 81 MG, UNK (LOW DOSE TAB 81 MG EC)

REACTIONS (1)
  - Drug ineffective [Recovered/Resolved]
